FAERS Safety Report 11612151 (Version 1)
Quarter: 2015Q4

REPORT INFORMATION
  Report Type: Report from Study
  Country: US (occurrence: US)
  Receive Date: 20151008
  Receipt Date: 20151008
  Transmission Date: 20160304
  Serious: No
  Sender: FDA-Public Use
  Company Number: US-GLAXOSMITHKLINE-US2015GSK138107

PATIENT
  Age: 45 Year
  Sex: Male

DRUGS (1)
  1. BELIMUMAB POWDER FOR INFUSION [Suspect]
     Active Substance: BELIMUMAB
     Indication: SYSTEMIC LUPUS ERYTHEMATOSUS
     Dosage: UNK
     Route: 005

REACTIONS (1)
  - Drug dose omission [Unknown]
